FAERS Safety Report 5352492-1 (Version None)
Quarter: 2007Q2

REPORT INFORMATION
  Report Type: 
  Country: None (occurrence: None)
  Receive Date: 20070611
  Receipt Date: 20070531
  Transmission Date: 20071010
  Serious: No
  Sender: FDA-Public Use
  Company Number: US-ASTRAZENECA-2006UW08472

PATIENT
  Age: 67 Year
  Sex: Male
  Weight: 113.6 kg

DRUGS (1)
  1. SEROQUEL [Suspect]
     Indication: DEPRESSION
     Dosage: 200 MG TO 300 MG
     Route: 048
     Dates: start: 20040402, end: 20070401

REACTIONS (1)
  - DIABETES MELLITUS [None]
